FAERS Safety Report 23336204 (Version 3)
Quarter: 2024Q2

REPORT INFORMATION
  Report Type: Spontaneous
  Country: CN (occurrence: CN)
  Receive Date: 20231225
  Receipt Date: 20240529
  Transmission Date: 20240715
  Serious: Yes (Life-Threatening, Hospitalization, Other)
  Sender: FDA-Public Use
  Company Number: CN-ORGANON-O2312CHN002321

PATIENT
  Age: 29 Year
  Sex: Female

DRUGS (1)
  1. FOLLITROPIN BETA [Suspect]
     Active Substance: FOLLITROPIN BETA
     Indication: Ovulation induction
     Dosage: 150IU, QD, SUBCUTANEOUS INJECTION
     Route: 058
     Dates: start: 20230925, end: 20230925

REACTIONS (4)
  - Abdominal distension [Recovered/Resolved]
  - Ovarian hyperstimulation syndrome [Unknown]
  - Abdominal pain [Unknown]
  - Chest discomfort [Unknown]

NARRATIVE: CASE EVENT DATE: 20230101
